FAERS Safety Report 6834459-7 (Version None)
Quarter: 2010Q3

REPORT INFORMATION
  Report Type: 
  Country: None (occurrence: None)
  Receive Date: 20100712
  Receipt Date: 20070422
  Transmission Date: 20110219
  Serious: No
  Sender: FDA-Public Use
  Company Number: US-PFIZER INC-2007033426

PATIENT
  Sex: Male
  Weight: 113.63 kg

DRUGS (5)
  1. CHANTIX [Suspect]
     Indication: SMOKING CESSATION THERAPY
     Dates: start: 20070414
  2. DIOVANE [Concomitant]
  3. CLONIDINE HYDROCHLORIDE [Concomitant]
     Indication: HYPERTENSION
  4. TRANXENE [Concomitant]
  5. CLORAZEPATE DIPOTASSIUM [Concomitant]

REACTIONS (6)
  - ANXIETY [None]
  - BLOOD PRESSURE INCREASED [None]
  - ERYTHEMA [None]
  - IRRITABILITY [None]
  - NERVOUSNESS [None]
  - STRESS [None]
